FAERS Safety Report 14043776 (Version 1)
Quarter: 2017Q4

REPORT INFORMATION
  Report Type: Report from Study
  Country: US (occurrence: US)
  Receive Date: 20171004
  Receipt Date: 20171004
  Transmission Date: 20180321
  Serious: No
  Sender: FDA-Public Use
  Company Number: US-AMGEN-USASL2016140304

PATIENT
  Age: 66 Year
  Sex: Female
  Weight: 63.11 kg

DRUGS (2)
  1. PROLIA [Suspect]
     Active Substance: DENOSUMAB
     Indication: OSTEOPOROSIS
     Dosage: 60 MG,(ONCE) UNK
     Route: 058
     Dates: start: 20130402
  2. PROLIA [Suspect]
     Active Substance: DENOSUMAB
     Dosage: 60 MG,(ONCE) UNK
     Route: 058
     Dates: start: 20160303

REACTIONS (3)
  - Asthenia [Recovered/Resolved]
  - Pain [Recovered/Resolved]
  - Back pain [Recovered/Resolved]

NARRATIVE: CASE EVENT DATE: 20130403
